FAERS Safety Report 20584629 (Version 1)
Quarter: 2022Q1

REPORT INFORMATION
  Report Type: Spontaneous
  Country: DE (occurrence: DE)
  Receive Date: 20220311
  Receipt Date: 20220311
  Transmission Date: 20220423
  Serious: Yes (Other)
  Sender: FDA-Public Use
  Company Number: DE-UCBSA-2022013186

PATIENT
  Sex: Male

DRUGS (9)
  1. VIMPAT [Suspect]
     Active Substance: LACOSAMIDE
     Indication: Seizure
     Dosage: 80 MG PER DAY (10 MG PER KG BODY WEIGHT)
  2. KEPPRA [Suspect]
     Active Substance: LEVETIRACETAM
     Indication: Seizure
     Dosage: UNK
  3. PHENOBARBITAL [Suspect]
     Active Substance: PHENOBARBITAL
     Indication: Seizure
     Dosage: UNK
  4. VIGABATRIN [Suspect]
     Active Substance: VIGABATRIN
     Indication: Seizure
     Dosage: UNK
  5. DRONABINOL [Suspect]
     Active Substance: DRONABINOL
     Indication: Seizure
     Dosage: UNK
  6. CANNABIDIOL [Suspect]
     Active Substance: CANNABIDIOL
     Indication: Seizure
     Dosage: UNK
  7. CORTISONE [Concomitant]
     Active Substance: CORTISONE
     Indication: Product used for unknown indication
  8. PHENYTOIN [Concomitant]
     Active Substance: PHENYTOIN
     Indication: Seizure
  9. LAMOTRIGINE [Concomitant]
     Active Substance: LAMOTRIGINE
     Indication: Seizure
     Dosage: 30 MG PER DAY (3.75 MG PER KG BODY WEIGHT).

REACTIONS (2)
  - Tonic convulsion [Recovering/Resolving]
  - Multiple-drug resistance [Unknown]
